FAERS Safety Report 5648476-6 (Version None)
Quarter: 2008Q1

REPORT INFORMATION
  Report Type: 
  Country: None (occurrence: None)
  Receive Date: 20080229
  Receipt Date: 20080214
  Transmission Date: 20080703
  Serious: Yes (Other)
  Sender: FDA-Public Use
  Company Number: E3810-01615-SPO-CA

PATIENT
  Sex: 0

DRUGS (1)
  1. RABEPRAZOLE SODIUM [Suspect]
     Dosage: ORAL
     Route: 048
     Dates: start: 20080204

REACTIONS (4)
  - ABDOMINAL DISTENSION [None]
  - IMPAIRED GASTRIC EMPTYING [None]
  - PROCEDURAL SITE REACTION [None]
  - SWELLING [None]
